FAERS Safety Report 25104395 (Version 2)
Quarter: 2025Q1

REPORT INFORMATION
  Report Type: Spontaneous
  Country: DE (occurrence: DE)
  Receive Date: 20250321
  Receipt Date: 20250327
  Transmission Date: 20250408
  Serious: Yes (Life-Threatening, Hospitalization, Disabling, Other)
  Sender: AUROBINDO
  Company Number: DE-UCBSA-2024067520

PATIENT
  Age: 32 Year
  Sex: Male

DRUGS (32)
  1. LACOSAMIDE [Suspect]
     Active Substance: LACOSAMIDE
     Indication: Epilepsy
     Dosage: 375 MILLIGRAM, ONCE A DAY [375 MILLIGRAM, ONCE DAILY (QD)]
     Route: 065
  2. LACOSAMIDE [Suspect]
     Active Substance: LACOSAMIDE
     Indication: Partial seizures
  3. LEVETIRACETAM [Suspect]
     Active Substance: LEVETIRACETAM
     Indication: Epilepsy
     Dosage: 2000 MILLIGRAM, ONCE A DAY [2000 MILLIGRAM, ONCE DAILY (QD)]
     Route: 065
  4. BRIVARACETAM [Suspect]
     Active Substance: BRIVARACETAM
     Indication: Epilepsy
     Dosage: 200 MILLIGRAM, ONCE A DAY [200 MILLIGRAM, ONCE DAILY (QD)]
     Route: 065
  5. BRIVARACETAM [Suspect]
     Active Substance: BRIVARACETAM
     Indication: Partial seizures
  6. PHENYTOIN [Suspect]
     Active Substance: PHENYTOIN
     Indication: Epilepsy
     Dosage: 500 MILLIGRAM, ONCE A DAY [500 MILLIGRAM, ONCE DAILY (QD)]
     Route: 065
  7. PHENYTOIN [Suspect]
     Active Substance: PHENYTOIN
     Indication: Partial seizures
     Dosage: 300 MILLIGRAM, ONCE A DAY
     Route: 065
  8. PHENYTOIN [Suspect]
     Active Substance: PHENYTOIN
     Dosage: 150 MILLIGRAM, ONCE A DAY
     Route: 065
  9. PERAMPANEL [Suspect]
     Active Substance: PERAMPANEL
     Indication: Epilepsy
     Dosage: 14 MILLIGRAM, ONCE A DAY [14 MILLIGRAM, ONCE DAILY (QD)]
     Route: 065
  10. PERAMPANEL [Suspect]
     Active Substance: PERAMPANEL
     Indication: Partial seizures
  11. CLOBAZAM [Suspect]
     Active Substance: CLOBAZAM
     Indication: Epilepsy
     Dosage: 30 MILLIGRAM, ONCE A DAY
     Route: 065
  12. HUMAN IMMUNOGLOBULIN G [Suspect]
     Active Substance: HUMAN IMMUNOGLOBULIN G
     Indication: Partial seizures
     Route: 042
  13. CANNABIS SATIVA SUBSP. INDICA TOP [Suspect]
     Active Substance: CANNABIS SATIVA SUBSP. INDICA TOP
     Indication: Partial seizures
  14. VALPROATE [Concomitant]
     Active Substance: VALPROIC ACID
     Indication: Epilepsy
     Dosage: 4000 MILLIGRAM, ONCE A DAY [4000 MILLIGRAM, ONCE DAILY (QD)]
     Route: 065
  15. VALPROATE [Concomitant]
     Active Substance: VALPROIC ACID
     Indication: Partial seizures
     Dosage: 3000 MILLIGRAM, ONCE A DAY
     Route: 065
  16. OXCARBAZEPINE [Concomitant]
     Active Substance: OXCARBAZEPINE
     Indication: Epilepsy
     Dosage: 1800 MILLIGRAM, ONCE A DAY [1800 MILLIGRAM, ONCE DAILY (QD)]
     Route: 065
  17. OXCARBAZEPINE [Concomitant]
     Active Substance: OXCARBAZEPINE
     Indication: Partial seizures
  18. PREDNISONE [Concomitant]
     Active Substance: PREDNISONE
     Indication: Epilepsy
     Route: 065
  19. PREDNISONE [Concomitant]
     Active Substance: PREDNISONE
     Indication: Partial seizures
  20. AZATHIOPRINE [Concomitant]
     Active Substance: AZATHIOPRINE
     Indication: Epilepsy
     Route: 065
  21. AZATHIOPRINE [Concomitant]
     Active Substance: AZATHIOPRINE
     Indication: Partial seizures
  22. LAMOTRIGINE [Concomitant]
     Active Substance: LAMOTRIGINE
     Indication: Epilepsy
     Dosage: 200 MILLIGRAM, ONCE A DAY [200 MILLIGRAM, ONCE DAILY (QD)]
     Route: 065
  23. LAMOTRIGINE [Concomitant]
     Active Substance: LAMOTRIGINE
     Indication: Partial seizures
  24. METHOTREXATE [Concomitant]
     Active Substance: METHOTREXATE
     Indication: Epilepsy
     Route: 065
  25. METHOTREXATE [Concomitant]
     Active Substance: METHOTREXATE
     Indication: Partial seizures
  26. MYCOPHENOLATE MOFETIL [Concomitant]
     Active Substance: MYCOPHENOLATE MOFETIL
     Indication: Epilepsy
     Route: 065
  27. MYCOPHENOLATE MOFETIL [Concomitant]
     Active Substance: MYCOPHENOLATE MOFETIL
     Indication: Partial seizures
  28. ADALIMUMAB [Concomitant]
     Active Substance: ADALIMUMAB
     Indication: Epilepsy
     Route: 065
  29. ADALIMUMAB [Concomitant]
     Active Substance: ADALIMUMAB
     Indication: Partial seizures
  30. RITUXIMAB [Concomitant]
     Active Substance: RITUXIMAB
     Indication: Partial seizures
     Route: 065
  31. LEVETIRACETAM [Concomitant]
     Active Substance: LEVETIRACETAM
     Indication: Partial seizures
     Dosage: 2000 MILLIGRAM, ONCE A DAY
     Route: 065
  32. LORAZEPAM [Concomitant]
     Active Substance: LORAZEPAM
     Indication: Postictal paralysis
     Route: 065

REACTIONS (6)
  - Ataxia [Unknown]
  - Drug ineffective [Unknown]
  - Sedation [Unknown]
  - Postictal paralysis [Recovering/Resolving]
  - Hyperammonaemia [Unknown]
  - Drug intolerance [Unknown]
